FAERS Safety Report 6843986-8 (Version None)
Quarter: 2010Q3

REPORT INFORMATION
  Report Type: 
  Country: None (occurrence: None)
  Receive Date: 20100715
  Receipt Date: 20100706
  Transmission Date: 20110219
  Serious: Yes (Other)
  Sender: FDA-Public Use
  Company Number: US-JNJFOC-20100404581

PATIENT
  Sex: Female

DRUGS (1)
  1. INVEGA SUSTENNA [Suspect]
     Indication: SCHIZOPHRENIA
     Route: 030

REACTIONS (18)
  - COGNITIVE DISORDER [None]
  - COMPLEX PARTIAL SEIZURES [None]
  - CONSTIPATION [None]
  - DEPRESSION [None]
  - DISORIENTATION [None]
  - DRY SKIN [None]
  - DYSARTHRIA [None]
  - DYSKINESIA [None]
  - EXOPHTHALMOS [None]
  - EYE MOVEMENT DISORDER [None]
  - FATIGUE [None]
  - MYDRIASIS [None]
  - PUPILLARY DISORDER [None]
  - RASH [None]
  - SKIN DISORDER [None]
  - TONGUE DISCOLOURATION [None]
  - URINARY INCONTINENCE [None]
  - WEIGHT INCREASED [None]
